FAERS Safety Report 6731237-4 (Version None)
Quarter: 2010Q2

REPORT INFORMATION
  Report Type: 
  Country: None (occurrence: None)
  Receive Date: 20100517
  Receipt Date: 20100517
  Transmission Date: 20101027
  Serious: Yes (Hospitalization)
  Sender: FDA-Public Use
  Company Number: None

PATIENT
  Sex: Female
  Weight: 80.5 kg

DRUGS (8)
  1. SUTENT [Suspect]
     Indication: BLADDER TRANSITIONAL CELL CARCINOMA
     Dosage: 37.5 MG DAILY ORAL
     Route: 048
     Dates: start: 20100311, end: 20100505
  2. PRILOSEC [Concomitant]
  3. BMX MOUTHWASH [Concomitant]
  4. ATENOLOL [Concomitant]
  5. TRIAMETERENCE-HCTZ [Concomitant]
  6. ZOCOR [Concomitant]
  7. RINCINOL MOUTHWASH [Concomitant]
  8. COMPAZINE [Concomitant]

REACTIONS (5)
  - HEPATITIS [None]
  - HYPOXIA [None]
  - MUSCULOSKELETAL PAIN [None]
  - PNEUMONIA [None]
  - SEPSIS [None]
